FAERS Safety Report 4499238-7 (Version None)
Quarter: 2004Q4

REPORT INFORMATION
  Report Type: 
  Country: None (occurrence: None)
  Receive Date: 20041111
  Receipt Date: 20041108
  Transmission Date: 20050328
  Serious: Yes (Hospitalization)
  Sender: FDA-Public Use
  Company Number: PHBS2004ES14951

PATIENT
  Age: 38 Year
  Sex: Female

DRUGS (3)
  1. TRILEPTAL [Suspect]
     Indication: DEPRESSION
     Dosage: 1800 MG/D
     Route: 048
     Dates: end: 20040607
  2. ZYPREXA [Concomitant]
  3. TRANKIMAZIN [Concomitant]

REACTIONS (1)
  - INAPPROPRIATE ANTIDIURETIC HORMONE SECRETION [None]
